FAERS Safety Report 5241062-1 (Version None)
Quarter: 2007Q1

REPORT INFORMATION
  Report Type: 
  Country: None (occurrence: None)
  Receive Date: 20070214
  Receipt Date: 20070214
  Transmission Date: 20070707
  Serious: Yes (Hospitalization, Other)
  Sender: FDA-Public Use
  Company Number: None

PATIENT
  Age: 72 Year
  Sex: Male
  Weight: 74.4 kg

DRUGS (18)
  1. PLAVIX [Suspect]
     Indication: CAROTID ARTERY STENT INSERTION
     Dosage: 75MG DAILY PO
     Route: 048
     Dates: start: 20020101, end: 20061009
  2. ASPIRIN [Suspect]
     Dosage: 81 MG DAILY PO
     Route: 048
     Dates: end: 20061009
  3. OMEPRAZOLE [Concomitant]
  4. AMITRIPTYLINE HCL [Concomitant]
  5. LORATADINE [Concomitant]
  6. TRAZODONE HCL [Concomitant]
  7. NEVIRAPINE [Concomitant]
  8. METOPROLOL SUCCINATE [Concomitant]
  9. EMTRICITABINE/TENOFOVIR [Concomitant]
  10. FELODIPINE [Concomitant]
  11. FLUVASTATIN [Concomitant]
  12. DOXAZOSIN MESYLATE [Concomitant]
  13. HYDROCHLOROTHIAZIDE [Concomitant]
  14. LISINOPRIL [Concomitant]
  15. ACETAMINOPHEN AND HYDROCODONE BITARTRATE [Concomitant]
  16. DOCUSATE [Concomitant]
  17. CODEINE/APAP [Concomitant]
  18. LEVOTHYROXINE SODIUM [Concomitant]

REACTIONS (1)
  - RECTAL HAEMORRHAGE [None]
